FAERS Safety Report 21469082 (Version 7)
Quarter: 2023Q1

REPORT INFORMATION
  Report Type: Report from Study
  Country: US (occurrence: US)
  Receive Date: 20221018
  Receipt Date: 20230123
  Transmission Date: 20230418
  Serious: Yes (Hospitalization, Other)
  Sender: FDA-Public Use
  Company Number: US-BoehringerIngelheim-2022-BI-178922

PATIENT
  Age: 65 Year
  Sex: Male

DRUGS (2)
  1. OFEV [Suspect]
     Active Substance: NINTEDANIB
     Indication: Idiopathic pulmonary fibrosis
     Dosage: LOT NO: 102655
     Route: 048
     Dates: start: 20220601
  2. OFEV [Suspect]
     Active Substance: NINTEDANIB
     Indication: Interstitial lung disease

REACTIONS (43)
  - Large intestinal haemorrhage [Unknown]
  - Pneumocystis jirovecii pneumonia [Recovered/Resolved]
  - Pneumocystis jirovecii pneumonia [Unknown]
  - Diarrhoea [Recovered/Resolved]
  - Nausea [Unknown]
  - Vomiting [Unknown]
  - Weight decreased [Unknown]
  - Diarrhoea [Unknown]
  - Constipation [Unknown]
  - Cerebral disorder [Unknown]
  - Renal impairment [Unknown]
  - Mouth swelling [Unknown]
  - Decreased appetite [Unknown]
  - Arrhythmia [Unknown]
  - Haematochezia [Not Recovered/Not Resolved]
  - Abdominal discomfort [Not Recovered/Not Resolved]
  - Abdominal pain upper [Recovered/Resolved]
  - Respiratory tract infection viral [Unknown]
  - Dairy intolerance [Not Recovered/Not Resolved]
  - Oxygen saturation decreased [Recovering/Resolving]
  - Abdominal tenderness [Unknown]
  - Aspartate aminotransferase increased [Unknown]
  - Muscular weakness [Recovered/Resolved]
  - Pulmonary function test decreased [Not Recovered/Not Resolved]
  - Atrial fibrillation [Not Recovered/Not Resolved]
  - Asthenia [Not Recovered/Not Resolved]
  - Skin wrinkling [Not Recovered/Not Resolved]
  - Vein disorder [Not Recovered/Not Resolved]
  - Hypotonia [Not Recovered/Not Resolved]
  - Staphylococcal infection [Not Recovered/Not Resolved]
  - Pneumonia bacterial [Not Recovered/Not Resolved]
  - Large intestine infection [Not Recovered/Not Resolved]
  - Abdominal pain upper [Not Recovered/Not Resolved]
  - Diarrhoea [Recovered/Resolved]
  - Diarrhoea [Recovered/Resolved]
  - Muscular weakness [Unknown]
  - Diarrhoea [Recovered/Resolved]
  - Abdominal pain [Unknown]
  - Blood potassium decreased [Unknown]
  - Illness [Unknown]
  - Pharyngitis bacterial [Not Recovered/Not Resolved]
  - Pain [Unknown]
  - Inappropriate schedule of product administration [Unknown]

NARRATIVE: CASE EVENT DATE: 20220901
